FAERS Safety Report 13587061 (Version 3)
Quarter: 2017Q3

REPORT INFORMATION
  Report Type: Spontaneous
  Country: DE (occurrence: DE)
  Receive Date: 20170526
  Receipt Date: 20170720
  Transmission Date: 20171127
  Serious: Yes (Other)
  Sender: FDA-Public Use
  Company Number: DE-BRISTOL-MYERS SQUIBB COMPANY-BMS-2017-043750

PATIENT
  Age: 72 Year
  Sex: Female
  Weight: 47 kg

DRUGS (3)
  1. ESBRIET [Suspect]
     Active Substance: PIRFENIDONE
     Indication: PULMONARY FIBROSIS
     Dosage: 2403 MG, QD (3 X 3 267 MG)
     Route: 065
     Dates: start: 201603, end: 20160817
  2. NIVOLUMAB [Suspect]
     Active Substance: NIVOLUMAB
     Indication: NON-SMALL CELL LUNG CANCER
     Dosage: 140 MG, Q2WK
     Route: 042
     Dates: start: 20160520
  3. OFEV [Suspect]
     Active Substance: NINTEDANIB
     Indication: PULMONARY FIBROSIS
     Dosage: 150 MG, QD (2 X 150 MG/D)
     Route: 065
     Dates: start: 20160818, end: 20170310

REACTIONS (5)
  - Weight decreased [Unknown]
  - Vomiting [Recovered/Resolved]
  - Rash [Recovered/Resolved]
  - Pulmonary fibrosis [Not Recovered/Not Resolved]
  - Nausea [Recovered/Resolved]

NARRATIVE: CASE EVENT DATE: 20160714
